FAERS Safety Report 4650365-0 (Version None)
Quarter: 2005Q2

REPORT INFORMATION
  Report Type: 
  Country: None (occurrence: None)
  Receive Date: 20050429
  Receipt Date: 20050420
  Transmission Date: 20051028
  Serious: Yes (Death, Hospitalization)
  Sender: FDA-Public Use
  Company Number: 2005AP00285

PATIENT
  Age: 81 Year
  Sex: Female
  Weight: 46 kg

DRUGS (19)
  1. IRESSA [Suspect]
     Indication: LUNG ADENOCARCINOMA
     Dosage: 250 MG DAILY PO
     Route: 048
     Dates: start: 20040126, end: 20040708
  2. IRESSA [Suspect]
     Indication: LUNG ADENOCARCINOMA
     Dosage: 250 MG DAILY PO
     Route: 048
     Dates: start: 20040818, end: 20041127
  3. RABEPRAZOLE SODIUM [Concomitant]
  4. PREDONINE [Concomitant]
  5. DUROTEP JANSSEN [Concomitant]
  6. IRESSA [Suspect]
     Indication: LUNG ADENOCARCINOMA
     Dosage: 250 MG DAILY PO
     Route: 048
     Dates: start: 20041130, end: 20050112
  7. VOLTAREN [Concomitant]
  8. GRAMALIL [Concomitant]
  9. ZYPREXA [Concomitant]
  10. AREDIA [Concomitant]
  11. ALFAROL [Concomitant]
  12. FOIPAN [Concomitant]
  13. LASIX [Concomitant]
  14. MEXITIL [Concomitant]
  15. DEPAS [Concomitant]
  16. MYSLEE [Concomitant]
  17. EURODIN [Concomitant]
  18. VINORELBINE TARTRATE [Concomitant]
  19. RADIOTHERAPY [Concomitant]

REACTIONS (13)
  - BLOOD LACTATE DEHYDROGENASE INCREASED [None]
  - DEPRESSION [None]
  - DRUG INEFFECTIVE [None]
  - ESCHERICHIA INFECTION [None]
  - HERPES ZOSTER [None]
  - IMMUNE SYSTEM DISORDER [None]
  - INTERSTITIAL LUNG DISEASE [None]
  - LEGIONELLA INFECTION [None]
  - NEISSERIA INFECTION [None]
  - PATHOLOGICAL FRACTURE [None]
  - SPINAL FRACTURE [None]
  - SPUTUM CULTURE POSITIVE [None]
  - STREPTOCOCCAL INFECTION [None]
